FAERS Safety Report 13328753 (Version 1)
Quarter: 2017Q1

REPORT INFORMATION
  Report Type: Spontaneous
  Country: US (occurrence: US)
  Receive Date: 20170311
  Receipt Date: 20170311
  Transmission Date: 20170428
  Serious: No
  Sender: FDA-Public Use
  Company Number: None

PATIENT
  Age: 34 Year
  Sex: Male
  Weight: 87.75 kg

DRUGS (4)
  1. VIGAMOX [Concomitant]
     Active Substance: MOXIFLOXACIN HYDROCHLORIDE
  2. COFFEE [Concomitant]
     Active Substance: ARABICA COFFEE BEAN\COFFEE BEAN
  3. PREDNISOLONE ACETATE OPHTHALMIC [Suspect]
     Active Substance: PREDNISOLONE ACETATE
     Indication: CONJUNCTIVITIS
     Dosage: ?          QUANTITY:1 DROP(S);?
     Route: 001
     Dates: start: 20170309, end: 20170311
  4. TOBRAMYCIN. [Concomitant]
     Active Substance: TOBRAMYCIN

REACTIONS (2)
  - Eye irritation [None]
  - Vision blurred [None]

NARRATIVE: CASE EVENT DATE: 20170311
